FAERS Safety Report 6736298-4 (Version None)
Quarter: 2010Q2

REPORT INFORMATION
  Report Type: 
  Country: None (occurrence: None)
  Receive Date: 20100521
  Receipt Date: 20100512
  Transmission Date: 20101027
  Serious: Yes (Hospitalization, Other)
  Sender: FDA-Public Use
  Company Number: HQWYE849212MAY04

PATIENT
  Sex: Female
  Weight: 72.64 kg

DRUGS (4)
  1. PREMPRO [Suspect]
  2. PROGESTERONE [Suspect]
  3. PROVERA [Suspect]
  4. PREMARIN [Suspect]

REACTIONS (3)
  - BREAST CANCER METASTATIC [None]
  - LIPOMA OF BREAST [None]
  - UTERINE POLYP [None]
